FAERS Safety Report 21016059 (Version 1)
Quarter: 2022Q2

REPORT INFORMATION
  Report Type: Spontaneous
  Country: US (occurrence: None)
  Receive Date: 20220627
  Receipt Date: 20220627
  Transmission Date: 20220721
  Serious: Yes (unspecified)
  Sender: FDA-Public Use
  Company Number: None

PATIENT
  Age: 17 Year
  Sex: Female

DRUGS (1)
  1. DUPIXENT [Suspect]
     Active Substance: DUPILUMAB
     Dosage: OTHER FREQUENCY : Q 2WKS;?
     Dates: start: 20220602, end: 20220623

REACTIONS (2)
  - Urticaria [None]
  - Swelling face [None]

NARRATIVE: CASE EVENT DATE: 20220622
